FAERS Safety Report 21008336 (Version 1)
Quarter: 2022Q2

REPORT INFORMATION
  Report Type: Spontaneous
  Country: US (occurrence: US)
  Receive Date: 20220627
  Receipt Date: 20220627
  Transmission Date: 20220721
  Serious: No
  Sender: FDA-Public Use
  Company Number: US-DENDREON PHARMACEUTICAL LLC-2021DEN000143

PATIENT

DRUGS (9)
  1. PROVENGE [Suspect]
     Active Substance: SIPULEUCEL-T
     Indication: Prostate cancer metastatic
     Dosage: DOSE # 1
     Route: 042
     Dates: start: 20210510, end: 20210510
  2. PROVENGE [Suspect]
     Active Substance: SIPULEUCEL-T
     Dosage: DOSE # 2
     Route: 042
     Dates: start: 20210524, end: 20210524
  3. POTASSIUM CHLORIDE [Concomitant]
     Active Substance: POTASSIUM CHLORIDE
  4. LOPRESSOR [Concomitant]
     Active Substance: METOPROLOL TARTRATE
  5. LISINOPRIL [Concomitant]
     Active Substance: LISINOPRIL
  6. PREDNISONE [Concomitant]
     Active Substance: PREDNISONE
  7. XGEVA [Concomitant]
     Active Substance: DENOSUMAB
  8. ZYTIGA [Concomitant]
     Active Substance: ABIRATERONE ACETATE
  9. ELIGARD [Concomitant]
     Active Substance: LEUPROLIDE ACETATE

REACTIONS (4)
  - Cardiac valve disease [Unknown]
  - Oedema peripheral [Unknown]
  - Labile blood pressure [Recovered/Resolved]
  - Fatigue [Recovering/Resolving]

NARRATIVE: CASE EVENT DATE: 20210510
